FAERS Safety Report 5324567-4 (Version None)
Quarter: 2007Q2

REPORT INFORMATION
  Report Type: 
  Country: None (occurrence: None)
  Receive Date: 20070508
  Receipt Date: 20070420
  Transmission Date: 20071010
  Serious: Yes (Hospitalization, Disabling)
  Sender: FDA-Public Use
  Company Number: 2006EU000015

PATIENT
  Age: 62 Year
  Sex: Male

DRUGS (7)
  1. TACROLIMUS [Suspect]
     Indication: LIVER TRANSPLANT
     Dosage: UNK, BID, ORAL
     Route: 048
     Dates: start: 20051029
  2. MYCOPHENOLATE MOFETIL [Suspect]
     Indication: LIVER TRANSPLANT
     Dosage: SEEI MAGE
     Dates: start: 20051029, end: 20051127
  3. MYCOPHENOLATE MOFETIL [Suspect]
     Indication: LIVER TRANSPLANT
     Dosage: SEEI MAGE
     Dates: start: 20051128
  4. METHYLPREDNISOLONE [Suspect]
     Indication: LIVER TRANSPLANT
     Dosage: 50 MG, QID, UNKNOWN
     Dates: start: 20051029
  5. PARACETAMOL [Concomitant]
  6. FUROSEMIDE [Concomitant]
  7. DUOVENT (FENOTEROL HYDROBROMIDE, IPRATROPIUM BROMIDE) [Concomitant]

REACTIONS (8)
  - APHASIA [None]
  - CEREBRAL INFARCTION [None]
  - CEREBRAL ISCHAEMIA [None]
  - CEREBROVASCULAR ACCIDENT [None]
  - HEMIANOPIA [None]
  - HEMIPARESIS [None]
  - INCORRECT DOSE ADMINISTERED [None]
  - SUBARACHNOID HAEMORRHAGE [None]
